FAERS Safety Report 9283814 (Version 1)
Quarter: 2013Q2

REPORT INFORMATION
  Report Type: Spontaneous
  Country: US (occurrence: US)
  Receive Date: 20130510
  Receipt Date: 20130510
  Transmission Date: 20140414
  Serious: No
  Sender: FDA-Public Use
  Company Number: US-009507513-1305USA004277

PATIENT
  Sex: 0

DRUGS (3)
  1. IMPLANON [Suspect]
     Dosage: UNK DF, UNK
     Route: 059
     Dates: start: 20070227
  2. IMPLANON [Suspect]
     Dosage: UNK
     Dates: start: 20130507, end: 20130507
  3. IMPLANON [Suspect]
     Dosage: 1 ROD, UNK
     Route: 059
     Dates: start: 20130507

REACTIONS (3)
  - Device difficult to use [Unknown]
  - Product quality issue [Unknown]
  - No adverse event [Unknown]
